FAERS Safety Report 9205798 (Version 1)
Quarter: 2013Q1

REPORT INFORMATION
  Report Type: Spontaneous
  Country: US (occurrence: None)
  Receive Date: 20120731
  Receipt Date: 20120731
  Transmission Date: 20140127
  Serious: Yes (Hospitalization, Other)
  Sender: FDA-Public Use
  Company Number: US201206000363

PATIENT
  Sex: Male

DRUGS (3)
  1. BYDUREON [Suspect]
     Route: 058
  2. LEVEMIR (INSULIN DETEMIR) [Concomitant]
  3. INSULIN (INSULIN) [Concomitant]

REACTIONS (2)
  - Pancreatitis [None]
  - Off label use [None]
